FAERS Safety Report 25996202 (Version 1)
Quarter: 2025Q4

REPORT INFORMATION
  Report Type: Spontaneous
  Country: US (occurrence: None)
  Receive Date: 20251104
  Receipt Date: 20251104
  Transmission Date: 20260118
  Serious: Yes (Hospitalization)
  Sender: FDA-CTU
  Company Number: None

PATIENT
  Sex: Female

DRUGS (3)
  1. NUCALA [Suspect]
     Active Substance: MEPOLIZUMAB
     Indication: Cardiac failure
     Dosage: OTHER FREQUENCY : EVERY 28 DAYS;?
     Route: 058
     Dates: start: 20250808
  2. FUROSEMIDE [Suspect]
     Active Substance: FUROSEMIDE
  3. ERYTHROMYCIN [Suspect]
     Active Substance: ERYTHROMYCIN

REACTIONS (5)
  - Interstitial lung disease [None]
  - Pericardial effusion [None]
  - Pleural effusion [None]
  - Therapy interrupted [None]
  - Diarrhoea [None]
